FAERS Safety Report 25045872 (Version 1)
Quarter: 2025Q1

REPORT INFORMATION
  Report Type: Spontaneous
  Country: CO (occurrence: CO)
  Receive Date: 20250306
  Receipt Date: 20250306
  Transmission Date: 20250409
  Serious: Yes (Life-Threatening, Hospitalization, Other)
  Sender: BAYER HEALTHCARE PHARMACEUTICALS INC.
  Company Number: CO-BAYER-2025A028653

PATIENT
  Age: 57 Year
  Sex: Female

DRUGS (1)
  1. ULTRAVIST [Suspect]
     Active Substance: IOPROMIDE
     Indication: Computerised tomogram heart
     Dates: start: 202411, end: 202411

REACTIONS (12)
  - Anaphylactic shock [None]
  - Contrast media allergy [None]
  - Nasal congestion [None]
  - Pruritus [None]
  - Nausea [None]
  - Urticaria [None]
  - Angioedema [None]
  - Dyspnoea [None]
  - Blood pressure decreased [None]
  - Respiratory rate increased [None]
  - Heart rate increased [None]
  - Oxygen saturation decreased [None]

NARRATIVE: CASE EVENT DATE: 20241101
